FAERS Safety Report 9853384 (Version 3)
Quarter: 2014Q2

REPORT INFORMATION
  Report Type: Spontaneous
  Country: US (occurrence: US)
  Receive Date: 20140129
  Receipt Date: 20140403
  Transmission Date: 20141212
  Serious: Yes (Disabling, Other)
  Sender: FDA-Public Use
  Company Number: US-TEVA-458828USA

PATIENT
  Sex: Female

DRUGS (3)
  1. LOSARTAN [Suspect]
     Dosage: HAS TAKEN FOR 5 YEARS
  2. LABETALOL [Suspect]
  3. LEVOTHYROXINE [Suspect]

REACTIONS (6)
  - Ileostomy [Unknown]
  - Arthritis [Unknown]
  - Blood pressure increased [Unknown]
  - Drug ineffective [Unknown]
  - Medication residue present [Unknown]
  - Product taste abnormal [Unknown]
